FAERS Safety Report 7769716-3 (Version None)
Quarter: 2011Q3

REPORT INFORMATION
  Report Type: 
  Country: None (occurrence: None)
  Receive Date: 20110922
  Receipt Date: 20110429
  Transmission Date: 20111222
  Serious: No
  Sender: FDA-Public Use
  Company Number: US-ASTRAZENECA-2011SE09768

PATIENT
  Age: 438 Month
  Sex: Female

DRUGS (8)
  1. SEROQUEL [Suspect]
     Route: 048
     Dates: start: 20110217
  2. BACTRIM DS [Concomitant]
     Indication: LYMPHADENOPATHY
     Dates: start: 20101101
  3. SEROQUEL [Suspect]
     Indication: BIPOLAR DISORDER
     Route: 048
     Dates: start: 20100601, end: 20110201
  4. SEROQUEL [Suspect]
     Indication: POST-TRAUMATIC STRESS DISORDER
     Route: 048
     Dates: start: 20100601, end: 20110201
  5. SEROQUEL [Suspect]
     Route: 048
     Dates: start: 20110217
  6. CELEXA [Concomitant]
  7. HYZAAR [Concomitant]
     Dosage: 100-25 MG DAILY
  8. VYVANSE [Concomitant]
     Indication: ATTENTION DEFICIT/HYPERACTIVITY DISORDER

REACTIONS (5)
  - DRUG WITHDRAWAL SYNDROME [None]
  - DEPRESSED MOOD [None]
  - LYMPHADENOPATHY [None]
  - DRUG DOSE OMISSION [None]
  - SLEEP DISORDER [None]
